FAERS Safety Report 6187955-2 (Version None)
Quarter: 2009Q2

REPORT INFORMATION
  Report Type: 
  Country: None (occurrence: None)
  Receive Date: 20090513
  Receipt Date: 20090428
  Transmission Date: 20091009
  Serious: Yes (Other)
  Sender: FDA-Public Use
  Company Number: US-ROCHE-467674

PATIENT
  Sex: Male

DRUGS (4)
  1. PEGASYS [Suspect]
     Dosage: STRENGTH REPORTED AS: 180 MCG/0.5 ML.
     Route: 058
     Dates: start: 20060508, end: 20070402
  2. RIBAVIRIN [Suspect]
     Route: 048
     Dates: start: 20060508, end: 20070402
  3. EPOGEN [Concomitant]
     Indication: ANAEMIA
     Dates: start: 20061201
  4. OXYCODONE HCL [Concomitant]
     Indication: CANCER PAIN

REACTIONS (32)
  - ANAEMIA [None]
  - ANXIETY [None]
  - ARTHRALGIA [None]
  - ASTHENIA [None]
  - BALANCE DISORDER [None]
  - DEPRESSION [None]
  - DIABETES MELLITUS [None]
  - DIZZINESS [None]
  - DYSPNOEA EXERTIONAL [None]
  - DYSURIA [None]
  - EAR PAIN [None]
  - FATIGUE [None]
  - FEELING ABNORMAL [None]
  - HEADACHE [None]
  - HEPATITIS C [None]
  - HYPERTENSION [None]
  - HYPOAESTHESIA [None]
  - INSOMNIA [None]
  - LOSS OF CONSCIOUSNESS [None]
  - MALAISE [None]
  - MUSCLE SPASMS [None]
  - MYODESOPSIA [None]
  - PAIN OF SKIN [None]
  - PROSTATE CANCER RECURRENT [None]
  - PRURITUS [None]
  - RASH [None]
  - STRESS [None]
  - SUICIDAL IDEATION [None]
  - THINKING ABNORMAL [None]
  - URINARY TRACT DISORDER [None]
  - VERTIGO [None]
  - WEIGHT DECREASED [None]
